FAERS Safety Report 4500686-7 (Version None)
Quarter: 2004Q4

REPORT INFORMATION
  Report Type: 
  Country: None (occurrence: None)
  Receive Date: 20041112
  Receipt Date: 20041112
  Transmission Date: 20050328
  Serious: Yes (Death)
  Sender: FDA-Public Use
  Company Number: None

PATIENT
  Sex: Female
  Weight: 18 kg

DRUGS (2)
  1. CYCLOSPORINE [Suspect]
     Indication: HEART TRANSPLANT
     Dosage: 30 MG PO Q 8 H
     Route: 048
     Dates: start: 19960620, end: 20040903
  2. AZATHIOPRINE (IMURAM) [Concomitant]

REACTIONS (7)
  - ABDOMINAL PAIN [None]
  - B-CELL LYMPHOMA [None]
  - DIARRHOEA [None]
  - EPSTEIN-BARR VIRUS INFECTION [None]
  - LYMPHOPROLIFERATIVE DISORDER [None]
  - NAUSEA [None]
  - VOMITING [None]
